FAERS Safety Report 23626918 (Version 1)
Quarter: 2024Q1

REPORT INFORMATION
  Report Type: Spontaneous
  Country: ES (occurrence: ES)
  Receive Date: 20240313
  Receipt Date: 20240313
  Transmission Date: 20240409
  Serious: Yes (Hospitalization)
  Sender: FDA-Public Use
  Company Number: None

PATIENT
  Age: 79 Year
  Sex: Male

DRUGS (1)
  1. CLINDAMYCIN HYDROCHLORIDE [Suspect]
     Active Substance: CLINDAMYCIN HYDROCHLORIDE
     Indication: Maxillofacial operation
     Dosage: 300 MG, 3X/DAY (EVERY 8 HOURS, 1 AT BREAKFAST-1 AT LUNCH-1 AT DINNER)
     Route: 048
     Dates: start: 20231130, end: 20231205

REACTIONS (4)
  - Leukocytosis [Recovered/Resolved]
  - AGEP-DRESS overlap [Recovered/Resolved]
  - Neutrophilia [Recovered/Resolved]
  - Mixed liver injury [Recovered/Resolved]

NARRATIVE: CASE EVENT DATE: 20231205
